FAERS Safety Report 9830693 (Version 4)
Quarter: 2015Q2

REPORT INFORMATION
  Report Type: Report from Study
  Country: US (occurrence: US)
  Receive Date: 20140120
  Receipt Date: 20150513
  Transmission Date: 20150821
  Serious: Yes (Other)
  Sender: FDA-Public Use
  Company Number: US-ALEXION-A201400083

PATIENT

DRUGS (3)
  1. SOLIRIS [Suspect]
     Active Substance: ECULIZUMAB
     Indication: PAROXYSMAL NOCTURNAL HAEMOGLOBINURIA
     Dosage: 900 MG, Q2W
     Route: 042
     Dates: start: 20130703
  2. SOLIRIS [Suspect]
     Active Substance: ECULIZUMAB
     Dosage: UNK, Q2W
     Route: 042
  3. SOLIRIS [Suspect]
     Active Substance: ECULIZUMAB
     Dosage: UNK, QW
     Route: 042
     Dates: start: 20130703, end: 20130801

REACTIONS (11)
  - Blood lactate dehydrogenase increased [Unknown]
  - Oropharyngeal pain [Unknown]
  - Laboratory test abnormal [Unknown]
  - Sinus operation [Unknown]
  - Haemolysis [Unknown]
  - Pyrexia [Unknown]
  - Nasopharyngitis [Unknown]
  - Chills [Unknown]
  - Fatigue [Unknown]
  - Haemorrhage [Unknown]
  - Thrombocytopenic purpura [Unknown]

NARRATIVE: CASE EVENT DATE: 20140103
